FAERS Safety Report 13090218 (Version 1)
Quarter: 2017Q1

REPORT INFORMATION
  Report Type: Spontaneous
  Country: US (occurrence: US)
  Receive Date: 20170105
  Receipt Date: 20170105
  Transmission Date: 20170428
  Serious: Yes (Other)
  Sender: FDA-Public Use
  Company Number: US-BEH-2017076851

PATIENT
  Sex: Female
  Weight: 48.1 kg

DRUGS (31)
  1. HIZENTRA [Suspect]
     Active Substance: HUMAN IMMUNOGLOBULIN G
     Indication: IMMUNODEFICIENCY
     Dosage: 4 UNK, UNK
     Route: 042
  2. HIZENTRA [Suspect]
     Active Substance: HUMAN IMMUNOGLOBULIN G
     Indication: SELECTIVE IGG SUBCLASS DEFICIENCY
  3. PULMICORT TURBUHALER [Concomitant]
     Active Substance: BUDESONIDE
  4. BUMETANIDE. [Concomitant]
     Active Substance: BUMETANIDE
  5. OCUVITE [Concomitant]
     Active Substance: VITAMINS
  6. FIORICET [Concomitant]
     Active Substance: ACETAMINOPHEN\BUTALBITAL\CAFFEINE
  7. MAGNESIUM [Concomitant]
     Active Substance: MAGNESIUM
  8. PROAIR HFA [Concomitant]
     Active Substance: ALBUTEROL SULFATE
  9. METADATE CD [Concomitant]
     Active Substance: METHYLPHENIDATE HYDROCHLORIDE
  10. HIZENTRA [Suspect]
     Active Substance: HUMAN IMMUNOGLOBULIN G
     Indication: SELECTIVE IGA IMMUNODEFICIENCY
     Dosage: 4 G, UNK
     Route: 058
     Dates: start: 20130828
  11. ACETAMINOPHEN. [Concomitant]
     Active Substance: ACETAMINOPHEN
  12. CHOLESTYRAMINE. [Concomitant]
     Active Substance: CHOLESTYRAMINE
  13. BENADRYL [Concomitant]
     Active Substance: DIPHENHYDRAMINE HYDROCHLORIDE
  14. POTASSIUM [Concomitant]
     Active Substance: POTASSIUM
  15. FISH OIL [Concomitant]
     Active Substance: FISH OIL
  16. TAGAMET HB [Concomitant]
     Active Substance: CIMETIDINE
  17. PILOCARPINE. [Concomitant]
     Active Substance: PILOCARPINE
  18. LIPITOR [Concomitant]
     Active Substance: ATORVASTATIN CALCIUM
  19. ONE-A-DAY                          /00156401/ [Concomitant]
     Active Substance: UNSPECIFIED INGREDIENT
  20. LUTEIN                             /01638501/ [Concomitant]
     Active Substance: LUTEIN
  21. PRILOSEC [Concomitant]
     Active Substance: OMEPRAZOLE MAGNESIUM
  22. MIDODRINE [Concomitant]
     Active Substance: MIDODRINE
  23. RANITIDINE. [Concomitant]
     Active Substance: RANITIDINE
  24. IMITREX [Concomitant]
     Active Substance: SUMATRIPTAN SUCCINATE
  25. TEMAZEPAM. [Concomitant]
     Active Substance: TEMAZEPAM
  26. LEXAPRO [Concomitant]
     Active Substance: ESCITALOPRAM OXALATE
  27. SINGULAIR [Concomitant]
     Active Substance: MONTELUKAST SODIUM
  28. EPIPEN [Concomitant]
     Active Substance: EPINEPHRINE
  29. AZELASTINE [Concomitant]
     Active Substance: AZELASTINE
  30. CALCIUM [Concomitant]
     Active Substance: CALCIUM
  31. FLORASTOR [Concomitant]
     Active Substance: SACCHAROMYCES CEREVISIAE

REACTIONS (1)
  - Infectious colitis [Unknown]
